FAERS Safety Report 5484594-3 (Version None)
Quarter: 2007Q4

REPORT INFORMATION
  Report Type: 
  Country: None (occurrence: None)
  Receive Date: 20071012
  Receipt Date: 20071002
  Transmission Date: 20080405
  Serious: Yes (Hospitalization, Other)
  Sender: FDA-Public Use
  Company Number: US-PFIZER INC-2007082429

PATIENT
  Sex: Female
  Weight: 82.5 kg

DRUGS (4)
  1. LYRICA [Suspect]
  2. SYNTHROID [Concomitant]
  3. TRAMADOL HCL [Concomitant]
  4. FLEXERIL [Concomitant]

REACTIONS (5)
  - BACK PAIN [None]
  - ELECTROCARDIOGRAM QT PROLONGED [None]
  - NECK PAIN [None]
  - SYNCOPE [None]
  - TORSADE DE POINTES [None]
